FAERS Safety Report 5122575-X (Version None)
Quarter: 2006Q4

REPORT INFORMATION
  Report Type: 
  Country: None (occurrence: None)
  Receive Date: 20061009
  Receipt Date: 20060518
  Transmission Date: 20070319
  Serious: Yes (Hospitalization)
  Sender: FDA-Public Use
  Company Number: PHBS2006JP07613

PATIENT
  Age: 68 Year
  Sex: Male
  Weight: 58 kg

DRUGS (8)
  1. SYMMETREL [Suspect]
     Indication: CEREBRAL INFARCTION
     Dosage: 150 MG/D
     Route: 048
     Dates: start: 20060209, end: 20060417
  2. COAX [Suspect]
     Indication: CEREBRAL INFARCTION
     Dosage: 3 DF/D
     Route: 048
     Dates: start: 20060209, end: 20060417
  3. FAMOTIDINE [Suspect]
     Indication: GASTRITIS
     Dosage: 20 DF/D
     Route: 048
     Dates: start: 20060305, end: 20060417
  4. NORVASC [Suspect]
     Indication: HYPERTENSION
     Dosage: 5 MG/D
     Route: 048
     Dates: start: 20060204
  5. DIOVAN [Suspect]
     Indication: HYPERTENSION
     Dosage: 80 MG/D
     Route: 048
     Dates: start: 20060204
  6. BASSAMIN 81 MG [Suspect]
     Indication: CEREBRAL INFARCTION
     Dosage: 81 MG/D
     Route: 048
     Dates: start: 20060209
  7. BASEN [Suspect]
     Indication: DIABETES MELLITUS
     Dosage: 0.6 DF/D
     Route: 048
     Dates: start: 20060311, end: 20060412
  8. NOVOLIN N [Suspect]
     Route: 058
     Dates: start: 20060213, end: 20060427

REACTIONS (8)
  - ALANINE AMINOTRANSFERASE INCREASED [None]
  - ASPARTATE AMINOTRANSFERASE INCREASED [None]
  - BLOOD ALKALINE PHOSPHATASE INCREASED [None]
  - BLOOD GLUCOSE INCREASED [None]
  - BLOOD LACTATE DEHYDROGENASE INCREASED [None]
  - GAMMA-GLUTAMYLTRANSFERASE INCREASED [None]
  - HEPATIC FUNCTION ABNORMAL [None]
  - LIVER DISORDER [None]
